FAERS Safety Report 13428187 (Version 1)
Quarter: 2017Q2

REPORT INFORMATION
  Report Type: Spontaneous
  Country: NO (occurrence: NO)
  Receive Date: 20170411
  Receipt Date: 20170411
  Transmission Date: 20170830
  Serious: Yes (Other)
  Sender: FDA-Public Use
  Company Number: NO-PFIZER INC-2017152387

PATIENT

DRUGS (6)
  1. ALBYL-E [Concomitant]
     Active Substance: ASPIRIN\MAGNESIUM OXIDE
     Dosage: UNK
  2. ATACAND [Concomitant]
     Active Substance: CANDESARTAN CILEXETIL
     Dosage: UNK
  3. METOPROLOL TARTRATE. [Concomitant]
     Active Substance: METOPROLOL TARTRATE
     Dosage: UNK
  4. LERKANIDIPIN [Concomitant]
     Dosage: UNK
  5. LIPITOR [Concomitant]
     Active Substance: ATORVASTATIN CALCIUM
     Dosage: UNK
  6. CHAMPIX [Suspect]
     Active Substance: VARENICLINE TARTRATE
     Indication: SMOKING CESSATION THERAPY
     Dosage: THE INSTRUCTION WAS FOLLOWED
     Dates: start: 20160927, end: 20160929

REACTIONS (45)
  - Diarrhoea [Recovering/Resolving]
  - Back pain [Recovering/Resolving]
  - Panic reaction [Recovering/Resolving]
  - Tremor [Recovering/Resolving]
  - Irritability [Recovering/Resolving]
  - Nasal discomfort [Recovering/Resolving]
  - Restlessness [Recovering/Resolving]
  - Hot flush [Recovering/Resolving]
  - Influenza like illness [Recovering/Resolving]
  - Depression [Recovering/Resolving]
  - Nightmare [Recovering/Resolving]
  - Constipation [Recovering/Resolving]
  - Pollakiuria [Recovering/Resolving]
  - Feeling drunk [Recovering/Resolving]
  - Sleep disorder [Recovering/Resolving]
  - Myalgia [Recovering/Resolving]
  - Heart rate increased [Recovering/Resolving]
  - Nasal congestion [Recovering/Resolving]
  - Thirst [Recovering/Resolving]
  - Apathy [Recovering/Resolving]
  - Failure to thrive [Recovering/Resolving]
  - Mental impairment [Recovering/Resolving]
  - Abnormal dreams [Recovering/Resolving]
  - Headache [Recovering/Resolving]
  - Dizziness [Recovering/Resolving]
  - Nausea [Recovering/Resolving]
  - Sensory loss [Recovering/Resolving]
  - Blood pressure increased [Recovering/Resolving]
  - Throat irritation [Recovering/Resolving]
  - Visual impairment [Recovering/Resolving]
  - Feeling cold [Recovering/Resolving]
  - Judgement impaired [Recovering/Resolving]
  - Balance disorder [Recovering/Resolving]
  - Migraine [Recovering/Resolving]
  - Vomiting [Recovering/Resolving]
  - Abdominal pain upper [Recovering/Resolving]
  - Photophobia [Recovering/Resolving]
  - Chest pain [Recovering/Resolving]
  - Disturbance in attention [Recovering/Resolving]
  - Palpitations [Recovering/Resolving]
  - Cheilitis [Recovering/Resolving]
  - Abdominal distension [Recovering/Resolving]
  - Mood swings [Recovering/Resolving]
  - Cough [Recovering/Resolving]
  - Muscle tightness [Recovering/Resolving]

NARRATIVE: CASE EVENT DATE: 201609
